FAERS Safety Report 18196644 (Version 1)
Quarter: 2020Q3

REPORT INFORMATION
  Report Type: Spontaneous
  Country: US (occurrence: US)
  Receive Date: 20200825
  Receipt Date: 20200825
  Transmission Date: 20201103
  Serious: Yes (Other)
  Sender: FDA-Public Use
  Company Number: None

PATIENT
  Age: 42 Year
  Sex: Male
  Weight: 81 kg

DRUGS (1)
  1. NASAL SPRAY ORIGINAL ? OXYMETAZOLINE 0.05% [Suspect]
     Active Substance: OXYMETAZOLINE
     Indication: NASAL CONGESTION
     Dosage: ?          QUANTITY:1 SPRAY(S);?
     Route: 055
     Dates: start: 20200810, end: 20200825

REACTIONS (3)
  - Myocardial infarction [None]
  - Dyspepsia [None]
  - Pain [None]

NARRATIVE: CASE EVENT DATE: 20200825
